FAERS Safety Report 6730091-4 (Version None)
Quarter: 2010Q2

REPORT INFORMATION
  Report Type: 
  Country: None (occurrence: None)
  Receive Date: 20100513
  Receipt Date: 20100428
  Transmission Date: 20101027
  Serious: Yes (Other)
  Sender: FDA-Public Use
  Company Number: 2010S1002716

PATIENT
  Age: 47 Year
  Sex: Female

DRUGS (1)
  1. PHOSPHOSODA FLAVOR NOT SPECIFIED [Suspect]
     Indication: HYSTERECTOMY
     Dosage: PO
     Route: 048
     Dates: start: 20030510, end: 20030511

REACTIONS (1)
  - RENAL FAILURE [None]
